FAERS Safety Report 4503701-X (Version None)
Quarter: 2004Q4

REPORT INFORMATION
  Report Type: 
  Country: None (occurrence: None)
  Receive Date: 20041115
  Receipt Date: 20041102
  Transmission Date: 20050328
  Serious: Yes (Death, Hospitalization)
  Sender: FDA-Public Use
  Company Number: HQWYE204502NOV04

PATIENT
  Age: 69 Year
  Sex: Male

DRUGS (11)
  1. ANCARON (AMIODARONE, TABLET) [Suspect]
     Indication: VENTRICULAR FIBRILLATION
     Dosage: 200 MG 1X PER 1 DAY
     Route: 048
     Dates: start: 20040401, end: 20040814
  2. ISOSORBIDE MONONITRATE [Concomitant]
  3. PLETAL [Concomitant]
  4. BAYASPIRINA (ACETYLSALICYLIC ACID) [Concomitant]
  5. LASIX [Concomitant]
  6. ZYLORIC (ALLOPURINOL) [Concomitant]
  7. CARVEDILOL [Concomitant]
  8. GASTER (FAMOTIDINE) [Concomitant]
  9. ENALAPRIL MALEATE [Concomitant]
  10. WARFARIN SODIUM [Concomitant]
  11. DOPAMINE HCL [Concomitant]

REACTIONS (6)
  - ANAEMIA [None]
  - CARDIAC FAILURE CONGESTIVE [None]
  - INTERSTITIAL LUNG DISEASE [None]
  - PNEUMONIA BACTERIAL [None]
  - PSEUDOMONAS INFECTION [None]
  - STAPHYLOCOCCAL INFECTION [None]
